FAERS Safety Report 10221382 (Version 7)
Quarter: 2014Q3

REPORT INFORMATION
  Report Type: Spontaneous
  Country: TW (occurrence: TW)
  Receive Date: 20140606
  Receipt Date: 20140808
  Transmission Date: 20150326
  Serious: Yes (Hospitalization)
  Sender: FDA-Public Use
  Company Number: TW-PFIZER INC-2013328616

PATIENT
  Age: 50 Year
  Sex: Male

DRUGS (2)
  1. SUTENT [Suspect]
     Active Substance: SUNITINIB MALATE
     Dosage: 50 MG, PER DAY, CYCLIC FOR TWO WEEKS ON AND ONE WEEK OFF
     Route: 048
     Dates: start: 20140801, end: 20140803
  2. SUTENT [Suspect]
     Active Substance: SUNITINIB MALATE
     Indication: METASTATIC RENAL CELL CARCINOMA
     Dosage: 50 MG PER DAY, CYCLIC FOR TWO WEEKS ON AND ONE WEEK OFF
     Route: 048
     Dates: start: 20130201, end: 20140528

REACTIONS (6)
  - Palmar-plantar erythrodysaesthesia syndrome [Recovering/Resolving]
  - Diarrhoea [Not Recovered/Not Resolved]
  - Bone pain [Unknown]
  - Cellulitis [Not Recovered/Not Resolved]
  - Abscess [Not Recovered/Not Resolved]
  - Hypertension [Recovering/Resolving]
